FAERS Safety Report 6314548-6 (Version None)
Quarter: 2009Q3

REPORT INFORMATION
  Report Type: 
  Country: None (occurrence: None)
  Receive Date: 20090819
  Receipt Date: 20090811
  Transmission Date: 20100115
  Serious: Yes (Hospitalization)
  Sender: FDA-Public Use
  Company Number: PHHY2009VE22087

PATIENT
  Sex: Female

DRUGS (5)
  1. ACLASTA [Suspect]
     Indication: OSTEOARTHRITIS
     Dosage: 5 MG, UNK
     Route: 042
     Dates: start: 20080506
  2. CALCIUM [Concomitant]
     Indication: OSTEOARTHRITIS
     Dosage: 1500 MG, UNK
     Route: 048
  3. CHONDROITIN W/GLUCOSAMINE [Concomitant]
     Indication: MUSCULOSKELETAL PAIN
     Dosage: UNK
     Route: 048
     Dates: start: 20080601, end: 20090401
  4. EUTHYROX [Concomitant]
     Indication: HYPOTHYROIDISM
     Dosage: 75 MG, QD
     Route: 048
  5. OMEPRAZOLE [Concomitant]
     Dosage: 20 MG, QD
     Route: 048

REACTIONS (5)
  - ARTHRALGIA [None]
  - HERPES ZOSTER [None]
  - MENISCUS LESION [None]
  - MENISCUS OPERATION [None]
  - PAIN [None]
